FAERS Safety Report 8899527 (Version 1)
Quarter: 2012Q4

REPORT INFORMATION
  Report Type: 
  Country: US (occurrence: US)
  Receive Date: 20121108
  Receipt Date: 20121108
  Transmission Date: 20130627
  Serious: No
  Sender: FDA-Public Use
  Company Number: US-AMGEN-USASP2012026458

PATIENT
  Age: 33 Year
  Sex: Female

DRUGS (3)
  1. ENBREL [Suspect]
     Indication: RHEUMATOID ARTHRITIS
     Dosage: 50 mg, qwk
     Dates: start: 20120317
  2. PLAQUENIL                          /00072603/ [Concomitant]
     Dates: start: 201202
  3. PREDNISONE [Concomitant]

REACTIONS (2)
  - Fatigue [Not Recovered/Not Resolved]
  - Urticaria [Not Recovered/Not Resolved]
